FAERS Safety Report 5971578-1 (Version None)
Quarter: 2008Q4

REPORT INFORMATION
  Report Type: 
  Country: None (occurrence: None)
  Receive Date: 20081201
  Receipt Date: 20081127
  Transmission Date: 20090506
  Serious: Yes (Life-Threatening, Hospitalization)
  Sender: FDA-Public Use
  Company Number: FR-JNJFOC-20081004421

PATIENT
  Sex: Female
  Weight: 66 kg

DRUGS (6)
  1. DURAGESIC-100 [Suspect]
     Route: 062
  2. DURAGESIC-100 [Suspect]
     Indication: RADICULAR PAIN
     Route: 062
  3. EVISTA [Suspect]
     Indication: OSTEOPOROSIS
     Route: 048
  4. CALCIDOSE VIT D3 [Suspect]
     Indication: OSTEOPOROSIS
     Route: 048
  5. LYRICA [Suspect]
     Indication: ANALGESIA
  6. STEROGYL 15A [Concomitant]
     Route: 048

REACTIONS (2)
  - LOSS OF CONSCIOUSNESS [None]
  - MULTIPLE MYELOMA [None]
